FAERS Safety Report 7294637-2 (Version None)
Quarter: 2011Q1

REPORT INFORMATION
  Report Type: 
  Country: None (occurrence: None)
  Receive Date: 20110204
  Receipt Date: 20110125
  Transmission Date: 20110831
  Serious: Yes (Death, Hospitalization)
  Sender: FDA-Public Use
  Company Number: UTC-003971

PATIENT
  Age: 62 Year
  Sex: Male
  Weight: 66.2 kg

DRUGS (3)
  1. REVATIO [Concomitant]
  2. TYVASO [Suspect]
     Indication: PULMONARY HYPERTENSION
     Dosage: 54 MCG, INHALATION
     Route: 045
     Dates: start: 20100507, end: 20101227
  3. DIURETICS (DIURETICS) [Concomitant]

REACTIONS (1)
  - PNEUMONIA [None]
